FAERS Safety Report 14362479 (Version 3)
Quarter: 2018Q2

REPORT INFORMATION
  Report Type: Report from Study
  Country: BR (occurrence: BR)
  Receive Date: 20180108
  Receipt Date: 20180402
  Transmission Date: 20180711
  Serious: Yes (Other)
  Sender: FDA-Public Use
  Company Number: PHHY2017BR191319

PATIENT
  Sex: Female
  Weight: 75 kg

DRUGS (6)
  1. CETIRIZINE [Suspect]
     Active Substance: CETIRIZINE HYDROCHLORIDE
     Indication: PRODUCT USED FOR UNKNOWN INDICATION
     Route: 065
  2. CETIRIZINE [Concomitant]
     Active Substance: CETIRIZINE HYDROCHLORIDE
     Indication: URTICARIA
     Dosage: 2 DF, QD (5 YEARS AGO)
     Route: 048
  3. XOLAIR [Suspect]
     Active Substance: OMALIZUMAB
     Indication: CHRONIC SPONTANEOUS URTICARIA
     Dosage: 300 MG, QMO
     Route: 058
     Dates: start: 201709
  4. XOLAIR [Suspect]
     Active Substance: OMALIZUMAB
     Dosage: 150 MG, UNK
     Route: 058
     Dates: start: 20180105
  5. XOLAIR [Suspect]
     Active Substance: OMALIZUMAB
     Dosage: 2 AMPOULES (300 MG), QMO
     Route: 058
     Dates: start: 201711, end: 201711
  6. AMLODIPINE [Concomitant]
     Active Substance: AMLODIPINE BESYLATE
     Indication: HYPERTENSION
     Dosage: 5 MG, QD (1 YEAR AGO)
     Route: 048

REACTIONS (17)
  - Urticaria [Not Recovered/Not Resolved]
  - Pruritus [Recovered/Resolved]
  - Nervousness [Unknown]
  - Swelling face [Not Recovered/Not Resolved]
  - Blister [Recovered/Resolved]
  - Skin plaque [Not Recovered/Not Resolved]
  - Feeling of despair [Unknown]
  - Mass [Unknown]
  - Back pain [Unknown]
  - Pain [Unknown]
  - Body height decreased [Unknown]
  - Angioedema [Unknown]
  - Dry skin [Recovered/Resolved]
  - Pruritus generalised [Not Recovered/Not Resolved]
  - Skin exfoliation [Recovered/Resolved]
  - Anxiety [Unknown]
  - Pain in extremity [Unknown]
